FAERS Safety Report 14902680 (Version 1)
Quarter: 2018Q2

REPORT INFORMATION
  Report Type: Spontaneous
  Country: SI (occurrence: SI)
  Receive Date: 20180516
  Receipt Date: 20180516
  Transmission Date: 20180711
  Serious: Yes (Other)
  Sender: FDA-Public Use
  Company Number: SI-MYLANLABS-2018M1032237

PATIENT
  Age: 52 Year
  Sex: Female

DRUGS (4)
  1. PARICALCITOL. [Suspect]
     Active Substance: PARICALCITOL
     Indication: PROTEINURIA
     Dosage: 4 ?G, QD
  2. PARICALCITOL. [Suspect]
     Active Substance: PARICALCITOL
     Dosage: 2 ?G, UNK
  3. PARICALCITOL. [Suspect]
     Active Substance: PARICALCITOL
     Dosage: 1 ?G, UNK
  4. AGALSIDASE ALFA [Concomitant]
     Active Substance: AGALSIDASE ALFA
     Indication: PRODUCT USED FOR UNKNOWN INDICATION

REACTIONS (3)
  - Renal impairment [Recovered/Resolved]
  - Condition aggravated [Recovered/Resolved]
  - Cardiac function test abnormal [Recovered/Resolved]
